FAERS Safety Report 5117281-1 (Version None)
Quarter: 2006Q3

REPORT INFORMATION
  Report Type: 
  Country: None (occurrence: None)
  Receive Date: 20060829
  Receipt Date: 20060829
  Transmission Date: 20061208
  Serious: Yes (Hospitalization)
  Sender: FDA-Public Use
  Company Number: None

PATIENT
  Sex: Male
  Weight: 86.2 kg

DRUGS (1)
  1. CYCLOSPORINE [Suspect]
     Dosage: 8.63

REACTIONS (8)
  - BRONCHOSPASM [None]
  - HEADACHE [None]
  - HYPERHIDROSIS [None]
  - INFUSION RELATED REACTION [None]
  - LOSS OF CONSCIOUSNESS [None]
  - NAUSEA [None]
  - SINUS TACHYCARDIA [None]
  - VOMITING [None]
